FAERS Safety Report 9534242 (Version 1)
Quarter: 2013Q3

REPORT INFORMATION
  Report Type: Report from Study
  Country: US (occurrence: US)
  Receive Date: 20130918
  Receipt Date: 20130918
  Transmission Date: 20140515
  Serious: Yes (Other)
  Sender: FDA-Public Use
  Company Number: US-ROCHE-1275014

PATIENT
  Age: 40 Year
  Sex: Male

DRUGS (1)
  1. ZELBORAF [Suspect]
     Indication: METASTATIC MALIGNANT MELANOMA
     Route: 065

REACTIONS (15)
  - Dehydration [Unknown]
  - Nausea [Unknown]
  - Vomiting [Unknown]
  - Abdominal distension [Unknown]
  - Abdominal pain [Not Recovered/Not Resolved]
  - Skin ulcer [Unknown]
  - Swelling [Unknown]
  - Pain [Unknown]
  - Abdominal distension [Unknown]
  - Naevus haemorrhage [Unknown]
  - Ascites [Unknown]
  - Pyrexia [Unknown]
  - Dyskinesia [Unknown]
  - Sunburn [Not Recovered/Not Resolved]
  - Skin exfoliation [Unknown]
